FAERS Safety Report 24977705 (Version 2)
Quarter: 2025Q1

REPORT INFORMATION
  Report Type: Report from Study
  Country: US (occurrence: US)
  Receive Date: 20250217
  Receipt Date: 20250301
  Transmission Date: 20250408
  Serious: Yes (Hospitalization, Other)
  Sender: ABBVIE
  Company Number: US-ABBVIE-6131195

PATIENT
  Age: 63 Year
  Sex: Female
  Weight: 80.739 kg

DRUGS (2)
  1. HUMIRA [Suspect]
     Active Substance: ADALIMUMAB
     Indication: Rheumatoid arthritis
     Route: 058
     Dates: start: 2018, end: 20240501
  2. LIDOCAINE [Concomitant]
     Active Substance: LIDOCAINE
     Indication: Pain

REACTIONS (15)
  - Memory impairment [Recovering/Resolving]
  - Hiatus hernia [Recovered/Resolved]
  - Thoracic operation [Unknown]
  - Feeding disorder [Recovering/Resolving]
  - Anaesthetic complication neurological [Unknown]
  - Gastrooesophageal reflux disease [Not Recovered/Not Resolved]
  - Incorrect dose administered [Recovered/Resolved]
  - Dupuytren^s contracture [Recovered/Resolved]
  - Gastric volvulus [Not Recovered/Not Resolved]
  - Ligament rupture [Recovered/Resolved]
  - Dyspnoea [Recovering/Resolving]
  - Fall [Recovered/Resolved]
  - Joint swelling [Recovered/Resolved]
  - Anaesthetic complication [Recovered/Resolved]
  - Drug hypersensitivity [Unknown]

NARRATIVE: CASE EVENT DATE: 20240101
